FAERS Safety Report 10886217 (Version 1)
Quarter: 2015Q1

REPORT INFORMATION
  Report Type: Spontaneous
  Country: GB (occurrence: GB)
  Receive Date: 20150304
  Receipt Date: 20150304
  Transmission Date: 20150721
  Serious: Yes (Hospitalization)
  Sender: FDA-Public Use
  Company Number: GB-CELGENE-GBR-2015025137

PATIENT
  Sex: Female

DRUGS (2)
  1. ABRAXANE [Suspect]
     Active Substance: PACLITAXEL
     Indication: BREAST CANCER
     Dosage: 450 MILLIGRAM
     Route: 041
     Dates: start: 20150105, end: 20150127
  2. GABAPENTIN. [Concomitant]
     Active Substance: GABAPENTIN
     Indication: BACK PAIN
     Route: 065

REACTIONS (7)
  - Bone pain [Unknown]
  - Malignant hypertension [Recovered/Resolved]
  - Arthralgia [Recovered/Resolved]
  - Epistaxis [Unknown]
  - Dyspnoea [Unknown]
  - Dry skin [Unknown]
  - Pain in extremity [Unknown]
